FAERS Safety Report 10939227 (Version 2)
Quarter: 2015Q2

REPORT INFORMATION
  Report Type: Spontaneous
  Country: US (occurrence: US)
  Receive Date: 20150322
  Receipt Date: 20150525
  Transmission Date: 20150821
  Serious: No
  Sender: FDA-Public Use
  Company Number: US-JNJFOC-20100102062

PATIENT
  Age: 55 Year
  Sex: Female

DRUGS (1)
  1. NUCYNTA [Suspect]
     Active Substance: TAPENTADOL HYDROCHLORIDE
     Indication: ANALGESIC THERAPY
     Dosage: EVERY 4-6 HOURS
     Route: 048
     Dates: start: 200912, end: 200912

REACTIONS (4)
  - Drug ineffective [Recovered/Resolved]
  - Asthenia [Recovered/Resolved]
  - Middle insomnia [Recovered/Resolved]
  - Headache [Recovered/Resolved]

NARRATIVE: CASE EVENT DATE: 200912
